FAERS Safety Report 19006405 (Version 3)
Quarter: 2021Q4

REPORT INFORMATION
  Report Type: Spontaneous
  Country: US (occurrence: US)
  Receive Date: 20210315
  Receipt Date: 20211125
  Transmission Date: 20220303
  Serious: Yes (Hospitalization, Other)
  Sender: FDA-Public Use
  Company Number: US-UROGEN PHARMA LTD.-2021-UGN-000009

PATIENT

DRUGS (4)
  1. JELMYTO [Suspect]
     Active Substance: MITOMYCIN
     Indication: Transitional cell cancer of the renal pelvis and ureter
     Dosage: 15 CC VIA (INSTILLATION), ONE TIMES PER WEEK
     Dates: start: 20210202, end: 20210202
  2. JELMYTO [Suspect]
     Active Substance: MITOMYCIN
     Dosage: 15 CC VIA (INSTILLATION), ONE TIMES PER WEEK
     Dates: start: 20210209, end: 20210209
  3. JELMYTO [Suspect]
     Active Substance: MITOMYCIN
     Dosage: 15 CC VIA (INSTILLATION), ONE TIMES PER WEEK
     Dates: start: 20210216, end: 20210216
  4. JELMYTO [Suspect]
     Active Substance: MITOMYCIN
     Dosage: 15 CC VIA (INSTILLATION), ONE TIMES PER WEEK
     Dates: start: 20210223, end: 20210223

REACTIONS (5)
  - Bacteraemia [Recovered/Resolved]
  - Pelvi-ureteric obstruction [Unknown]
  - Micturition urgency [Unknown]
  - Pollakiuria [Unknown]
  - Renal pain [Recovered/Resolved]

NARRATIVE: CASE EVENT DATE: 20210223
